FAERS Safety Report 8789361 (Version 2)
Quarter: 2012Q4

REPORT INFORMATION
  Report Type: Spontaneous
  Country: JP (occurrence: None)
  Receive Date: 20120905
  Receipt Date: 20121024
  Transmission Date: 20130627
  Serious: Yes (Hospitalization)
  Sender: FDA-Public Use
  Company Number: NSR_00650_2012

PATIENT
  Age: 14 Year
  Sex: Female

DRUGS (4)
  1. LAMOTRIGINE (LAMOTRIGINE) [Suspect]
     Indication: CONVULSION
     Dosage: (dose increased)
  2. CLOBAZAM [Concomitant]
  3. VALPROATE SODIUM [Concomitant]
  4. TOPIRAMATE [Concomitant]

REACTIONS (13)
  - Lymphadenopathy [None]
  - Leukocytosis [None]
  - Eosinophilia [None]
  - Lymphocytosis [None]
  - Liver disorder [None]
  - Hypogammaglobulinaemia [None]
  - General physical health deterioration [None]
  - Hypothyroidism [None]
  - Cytomegalovirus viraemia [None]
  - Epstein-Barr virus infection [None]
  - Human herpesvirus 6 infection [None]
  - Drug reaction with eosinophilia and systemic symptoms [None]
  - Hyperthyroidism [None]
